FAERS Safety Report 7421119-7 (Version None)
Quarter: 2011Q2

REPORT INFORMATION
  Report Type: 
  Country: None (occurrence: None)
  Receive Date: 20110418
  Receipt Date: 20110408
  Transmission Date: 20111010
  Serious: Yes (Other)
  Sender: FDA-Public Use
  Company Number: PHHY2011NO28770

PATIENT
  Sex: Male

DRUGS (3)
  1. METFORMIN [Concomitant]
     Indication: DIABETES MELLITUS
     Route: 048
  2. FLUOROURACIL [Suspect]
  3. CISPLATIN [Suspect]
     Indication: NEOPLASM MALIGNANT

REACTIONS (1)
  - RENAL FAILURE [None]
